FAERS Safety Report 5530412-4 (Version None)
Quarter: 2007Q4

REPORT INFORMATION
  Report Type: 
  Country: None (occurrence: None)
  Receive Date: 20071127
  Receipt Date: 20071113
  Transmission Date: 20080405
  Serious: Yes (Other)
  Sender: FDA-Public Use
  Company Number: 164259USA

PATIENT
  Age: 50 Year
  Sex: Female

DRUGS (3)
  1. PIMOZIDE TABLETS (PIMOZIDE) [Suspect]
     Dosage: 4 DOSES TOTAL  (STRENGTH UNKNOWN) ORAL
     Route: 048
     Dates: start: 20071102, end: 20071102
  2. CLOZAPINE [Suspect]
     Dosage: 10 DOSES IN TOTAL, (STRENGTH UNKNOWN) ORAL
     Route: 048
     Dates: start: 20071102
  3. LORAZEPAM [Suspect]
     Dosage: 10 DOSE TOTAL (STRENGTH UNKNOWN) ORAL
     Route: 048
     Dates: start: 20071102

REACTIONS (3)
  - MULTIPLE DRUG OVERDOSE INTENTIONAL [None]
  - SOPOR [None]
  - SUICIDE ATTEMPT [None]
